FAERS Safety Report 5705951-3 (Version None)
Quarter: 2008Q2

REPORT INFORMATION
  Report Type: 
  Country: None (occurrence: None)
  Receive Date: 20080415
  Receipt Date: 20080407
  Transmission Date: 20081010
  Serious: Yes (Death, Other)
  Sender: FDA-Public Use
  Company Number: US-BAYER-200817952NA

PATIENT
  Age: 68 Year
  Sex: Male

DRUGS (1)
  1. TRASYLOL [Suspect]
     Indication: CORONARY ARTERY BYPASS
     Dates: start: 20060501

REACTIONS (10)
  - ACTIVITIES OF DAILY LIVING IMPAIRED [None]
  - ANHEDONIA [None]
  - ANXIETY [None]
  - EMOTIONAL DISTRESS [None]
  - ILL-DEFINED DISORDER [None]
  - INJURY [None]
  - MULTI-ORGAN FAILURE [None]
  - PAIN [None]
  - RENAL FAILURE ACUTE [None]
  - UNEVALUABLE EVENT [None]
